FAERS Safety Report 23859637 (Version 2)
Quarter: 2024Q2

REPORT INFORMATION
  Report Type: Spontaneous
  Country: US (occurrence: US)
  Receive Date: 20240515
  Receipt Date: 20240523
  Transmission Date: 20240717
  Serious: No
  Sender: FDA-Public Use
  Company Number: US-KYOWAKIRIN-2024KK011332

PATIENT

DRUGS (1)
  1. CRYSVITA [Suspect]
     Active Substance: BUROSUMAB-TWZA
     Indication: Product used for unknown indication
     Dosage: UNK
     Route: 065

REACTIONS (8)
  - Illness [Unknown]
  - Pyrexia [Unknown]
  - Loss of personal independence in daily activities [Unknown]
  - Speech disorder [Unknown]
  - Peripheral swelling [Unknown]
  - Rash [Unknown]
  - Dizziness [Unknown]
  - Inappropriate schedule of product administration [Not Recovered/Not Resolved]
